FAERS Safety Report 6868964-4 (Version None)
Quarter: 2010Q3

REPORT INFORMATION
  Report Type: 
  Country: None (occurrence: None)
  Receive Date: 20100722
  Receipt Date: 20100722
  Transmission Date: 20110219
  Serious: Yes (Hospitalization)
  Sender: FDA-Public Use
  Company Number: None

PATIENT
  Sex: Male
  Weight: 58.3 kg

DRUGS (3)
  1. FLUOROURACIL [Suspect]
     Dosage: 4704 MG
  2. LEUCOVORIN CALCIUM [Suspect]
     Dosage: 672 MG
  3. ELOXATIN [Suspect]
     Dosage: 143 MG

REACTIONS (2)
  - CELLULITIS [None]
  - DEVICE RELATED INFECTION [None]
